FAERS Safety Report 7006516-6 (Version None)
Quarter: 2010Q3

REPORT INFORMATION
  Report Type: 
  Country: None (occurrence: None)
  Receive Date: 20100921
  Receipt Date: 20100921
  Transmission Date: 20110219
  Serious: Yes (Other)
  Sender: FDA-Public Use
  Company Number: None

PATIENT
  Age: 78 Year
  Sex: Female

DRUGS (1)
  1. CIPROFLOXACIN [Suspect]
     Dates: start: 20100914, end: 20100914

REACTIONS (2)
  - INFUSION RELATED REACTION [None]
  - URTICARIA [None]
